FAERS Safety Report 10701722 (Version 1)
Quarter: 2015Q1

REPORT INFORMATION
  Report Type: Spontaneous
  Country: CN (occurrence: CN)
  Receive Date: 20150109
  Receipt Date: 20150109
  Transmission Date: 20150721
  Serious: Yes (Hospitalization)
  Sender: FDA-Public Use
  Company Number: CN-ELI_LILLY_AND_COMPANY-CN201501000838

PATIENT
  Sex: Male

DRUGS (4)
  1. HUMALOG MIX50/50 [Suspect]
     Active Substance: INSULIN LISPRO
     Dosage: 14 DF, IN THE NOON
     Route: 058
     Dates: start: 2011
  2. HUMALOG MIX50/50 [Suspect]
     Active Substance: INSULIN LISPRO
     Dosage: 12 DF, EACH EVENING
     Route: 058
     Dates: start: 2011
  3. HUMALOG [Suspect]
     Active Substance: INSULIN LISPRO
     Indication: DIABETES MELLITUS
     Dosage: UNK, BID
     Route: 058
     Dates: start: 2002, end: 2011
  4. HUMALOG MIX50/50 [Suspect]
     Active Substance: INSULIN LISPRO
     Indication: DIABETES MELLITUS
     Dosage: 13 DF, EACH MORNING
     Route: 058
     Dates: start: 2011

REACTIONS (4)
  - Blood glucose increased [Unknown]
  - Palpitations [Recovered/Resolved]
  - Blood glucose abnormal [Unknown]
  - Cold sweat [Recovered/Resolved]
